FAERS Safety Report 9404245 (Version 1)
Quarter: 2013Q3

REPORT INFORMATION
  Report Type: Spontaneous
  Country: US (occurrence: None)
  Receive Date: 20130716
  Receipt Date: 20130716
  Transmission Date: 20140515
  Serious: No
  Sender: FDA-Public Use
  Company Number: None

PATIENT
  Age: 84 Year
  Sex: Female
  Weight: 63.5 kg

DRUGS (5)
  1. FLONASE [Suspect]
     Indication: RHINITIS ALLERGIC
     Dosage: 50MCG?USED 2 PUFFS?BEDTIME?SQUIRTED INTO NOSE
     Dates: start: 20130705, end: 20130707
  2. NORVASC 2.5MG [Concomitant]
  3. VIT C [Concomitant]
  4. VIT D3 [Concomitant]
  5. CENTRUM SILVER [Concomitant]

REACTIONS (2)
  - Dizziness [None]
  - Gait disturbance [None]
